FAERS Safety Report 4727402-8 (Version None)
Quarter: 2005Q3

REPORT INFORMATION
  Report Type: 
  Country: None (occurrence: None)
  Receive Date: 20050727
  Receipt Date: 20050727
  Transmission Date: 20060218
  Serious: Yes (Hospitalization)
  Sender: FDA-Public Use
  Company Number: None

PATIENT
  Age: 67 Year
  Sex: Female
  Weight: 90.7194 kg

DRUGS (3)
  1. ASPIRIN [Suspect]
     Indication: PAIN
     Dosage: 325 MG PO DAILY -SEVERAL X DAILY [CHRONIC]
     Route: 048
  2. TYLENOL (CAPLET) [Concomitant]
  3. ASPIRIN [Concomitant]

REACTIONS (4)
  - ANAEMIA [None]
  - GASTRIC ULCER [None]
  - HYPOTENSION [None]
  - UPPER GASTROINTESTINAL HAEMORRHAGE [None]
